FAERS Safety Report 17669671 (Version 1)
Quarter: 2020Q2

REPORT INFORMATION
  Report Type: Spontaneous
  Country: US (occurrence: US)
  Receive Date: 20200414
  Receipt Date: 20200414
  Transmission Date: 20200713
  Serious: No
  Sender: FDA-Public Use
  Company Number: None

PATIENT
  Age: 54 Year
  Sex: Female
  Weight: 65.25 kg

DRUGS (1)
  1. PLAQUENIL [Suspect]
     Active Substance: HYDROXYCHLOROQUINE SULFATE
     Indication: RHEUMATOID ARTHRITIS
     Dosage: ?          QUANTITY:1 TABLET(S);?
     Route: 048

REACTIONS (9)
  - Muscle spasms [None]
  - Nervous system disorder [None]
  - Nonspecific reaction [None]
  - Fatigue [None]
  - Burning sensation [None]
  - Angiopathy [None]
  - Pruritus [None]
  - Pain of skin [None]
  - Anxiety [None]

NARRATIVE: CASE EVENT DATE: 20181129
